FAERS Safety Report 21034631 (Version 1)
Quarter: 2022Q3

REPORT INFORMATION
  Report Type: Spontaneous
  Country: US (occurrence: None)
  Receive Date: 20220701
  Receipt Date: 20220701
  Transmission Date: 20221027
  Serious: No
  Sender: FDA-Public Use
  Company Number: None

PATIENT

DRUGS (1)
  1. TIZANIDINE [Suspect]
     Active Substance: TIZANIDINE

REACTIONS (4)
  - Somnambulism [None]
  - Eating disorder [None]
  - Sleep disorder [None]
  - Upper limb fracture [None]
